FAERS Safety Report 20769394 (Version 1)
Quarter: 2022Q2

REPORT INFORMATION
  Report Type: Spontaneous
  Country: CA (occurrence: None)
  Receive Date: 20220429
  Receipt Date: 20220429
  Transmission Date: 20220720
  Serious: Yes (Other)
  Sender: FDA-Public Use
  Company Number: CA-ROCHE-3084243

PATIENT
  Age: 42 Year
  Sex: Female

DRUGS (1)
  1. RITUXIMAB [Suspect]
     Active Substance: RITUXIMAB
     Indication: Immunoglobulin G4 related disease
     Route: 042

REACTIONS (6)
  - Blood pressure abnormal [Unknown]
  - Condition aggravated [Unknown]
  - Exophthalmos [Unknown]
  - Headache [Unknown]
  - Heart rate increased [Unknown]
  - Off label use [Unknown]
